FAERS Safety Report 9744366 (Version 2)
Quarter: 2014Q2

REPORT INFORMATION
  Report Type: Spontaneous
  Country: LB (occurrence: LB)
  Receive Date: 20131210
  Receipt Date: 20140620
  Transmission Date: 20141212
  Serious: Yes (Death)
  Sender: FDA-Public Use
  Company Number: LB-CELGENEUS-093-22393-13120056

PATIENT
  Age: 67 Year
  Sex: Male

DRUGS (3)
  1. ISTODAX [Suspect]
     Indication: PRODUCT USED FOR UNKNOWN INDICATION
     Route: 041
     Dates: start: 20110617, end: 20130916
  2. GLUCOPHAGE [Concomitant]
     Indication: DIABETES MELLITUS
     Route: 065
  3. AMLIR [Concomitant]
     Indication: HYPERTENSION
     Route: 065

REACTIONS (1)
  - Disease progression [Fatal]
